FAERS Safety Report 9390550 (Version 1)
Quarter: 2013Q3

REPORT INFORMATION
  Report Type: Spontaneous
  Country: US (occurrence: US)
  Receive Date: 20130709
  Receipt Date: 20130709
  Transmission Date: 20140515
  Serious: No
  Sender: FDA-Public Use
  Company Number: US-BIOGENIDEC-2013BI059779

PATIENT
  Age: 48 Year
  Sex: Female

DRUGS (1)
  1. TYSABRI [Suspect]
     Indication: MULTIPLE SCLEROSIS
     Route: 042
     Dates: start: 20110127

REACTIONS (7)
  - Muscular weakness [Not Recovered/Not Resolved]
  - Limb injury [Recovered/Resolved]
  - Joint swelling [Recovered/Resolved]
  - Peroneal nerve palsy [Not Recovered/Not Resolved]
  - Urinary retention [Recovered/Resolved]
  - Back pain [Recovered/Resolved]
  - Ligament sprain [Recovered/Resolved]
